FAERS Safety Report 6544446-4 (Version None)
Quarter: 2010Q1

REPORT INFORMATION
  Report Type: 
  Country: None (occurrence: None)
  Receive Date: 20100121
  Receipt Date: 20100111
  Transmission Date: 20100710
  Serious: Yes (Hospitalization)
  Sender: FDA-Public Use
  Company Number: GB-RANBAXY-2010RR-30452

PATIENT

DRUGS (1)
  1. CLARITHROMYCIN [Suspect]
     Route: 048

REACTIONS (2)
  - GLOSSITIS [None]
  - GLOSSODYNIA [None]
